FAERS Safety Report 5339387-4 (Version None)
Quarter: 2007Q2

REPORT INFORMATION
  Report Type: 
  Country: None (occurrence: None)
  Receive Date: 20070525
  Receipt Date: 20070515
  Transmission Date: 20071010
  Serious: Yes (Other)
  Sender: FDA-Public Use
  Company Number: GXKR2007CH04372

PATIENT
  Age: 41 Year
  Sex: Male

DRUGS (2)
  1. ECOFENAC (NGX) (DICLOFENAC)UNKNOWN [Suspect]
     Indication: BACK PAIN
     Dosage: ORAL
     Route: 048
  2. MYDOCALM (TOLPERISONE HYDROCHLORIDE) [Suspect]
     Dosage: ORAL
     Route: 048
     Dates: start: 20070327, end: 20070406

REACTIONS (16)
  - ACTIVITIES OF DAILY LIVING IMPAIRED [None]
  - BLOOD CREATINE PHOSPHOKINASE INCREASED [None]
  - CHILLS [None]
  - CONVULSION [None]
  - DRUG DOSE OMISSION [None]
  - DRUG HYPERSENSITIVITY [None]
  - EPILEPSY [None]
  - FATIGUE [None]
  - FEELING ABNORMAL [None]
  - FREEZING PHENOMENON [None]
  - HEADACHE [None]
  - HYPERHIDROSIS [None]
  - PARAESTHESIA [None]
  - STARING [None]
  - UNRESPONSIVE TO STIMULI [None]
  - URINARY INCONTINENCE [None]
